FAERS Safety Report 7416761-3 (Version None)
Quarter: 2011Q2

REPORT INFORMATION
  Report Type: 
  Country: None (occurrence: None)
  Receive Date: 20110415
  Receipt Date: 20110406
  Transmission Date: 20111010
  Serious: No
  Sender: FDA-Public Use
  Company Number: US-BIOGENIDEC-2011BI013015

PATIENT
  Age: 60 Year
  Sex: Male

DRUGS (1)
  1. AVONEX [Suspect]
     Indication: MULTIPLE SCLEROSIS
     Route: 030
     Dates: start: 20110325

REACTIONS (9)
  - INFLUENZA LIKE ILLNESS [None]
  - RASH MACULAR [None]
  - TREMOR [None]
  - DYSPNOEA [None]
  - DEPRESSED MOOD [None]
  - ANGER [None]
  - PALPITATIONS [None]
  - ANXIETY [None]
  - MUSCLE SPASMS [None]
